FAERS Safety Report 8658353 (Version 4)
Quarter: 2015Q4

REPORT INFORMATION
  Report Type: Spontaneous
  Country: US (occurrence: US)
  Receive Date: 20120710
  Receipt Date: 20151001
  Transmission Date: 20160305
  Serious: Yes (Other)
  Sender: FDA-Public Use
  Company Number: US-ASTRAZENECA-2012SE43777

PATIENT
  Age: 796 Month
  Sex: Female
  Weight: 73.5 kg

DRUGS (8)
  1. SPIRIVA [Suspect]
     Active Substance: TIOTROPIUM BROMIDE MONOHYDRATE
     Route: 065
  2. FUROSEMIDE. [Concomitant]
     Active Substance: FUROSEMIDE
     Indication: OEDEMA
     Route: 048
  3. FUROSEMIDE. [Concomitant]
     Active Substance: FUROSEMIDE
     Indication: OEDEMA
     Dosage: ONE AND A HALF TABLETS
     Route: 048
  4. TUDORZA PRESSAIR [Suspect]
     Active Substance: ACLIDINIUM BROMIDE
     Route: 055
     Dates: start: 2015
  5. ATROVENT [Suspect]
     Active Substance: IPRATROPIUM BROMIDE
     Route: 065
  6. SYMBICORT [Suspect]
     Active Substance: BUDESONIDE\FORMOTEROL FUMARATE DIHYDRATE
     Dosage: 160/4.5 MICROGRAMS TO BE TAKEN AS 2 PUFFS IN THE MORNING AND 2 PUFFS IN THE EVENING
     Route: 055
     Dates: start: 201110
  7. GLYOXIDE [Concomitant]
  8. OMEPRAZOLE. [Suspect]
     Active Substance: OMEPRAZOLE
     Indication: GASTROOESOPHAGEAL REFLUX DISEASE
     Route: 048
     Dates: start: 201411

REACTIONS (15)
  - Adverse event [Unknown]
  - Drug dose omission [Unknown]
  - Weight increased [Unknown]
  - Pharyngeal oedema [Unknown]
  - Aphthous ulcer [Recovered/Resolved]
  - Migraine [Unknown]
  - Peripheral swelling [Unknown]
  - Oedema [Unknown]
  - Chronic obstructive pulmonary disease [Unknown]
  - Gastrooesophageal reflux disease [Unknown]
  - Stress [Unknown]
  - Intentional product misuse [Unknown]
  - Halo vision [Unknown]
  - Vocal cord cyst [Unknown]
  - Diarrhoea [Unknown]

NARRATIVE: CASE EVENT DATE: 201110
